FAERS Safety Report 11464801 (Version 3)
Quarter: 2015Q3

REPORT INFORMATION
  Report Type: Report from Study
  Country: US (occurrence: US)
  Receive Date: 20150906
  Receipt Date: 20150925
  Transmission Date: 20151125
  Serious: Yes (Other)
  Sender: FDA-Public Use
  Company Number: US-AMGEN-USASL2015090655

PATIENT
  Age: 70 Year
  Sex: Female
  Weight: 44.44 kg

DRUGS (1)
  1. ENBREL [Suspect]
     Active Substance: ETANERCEPT
     Indication: RHEUMATOID ARTHRITIS
     Dosage: 50 MG, QWK
     Route: 065
     Dates: start: 201508

REACTIONS (8)
  - Injection site pain [Not Recovered/Not Resolved]
  - Injection site reaction [Not Recovered/Not Resolved]
  - Arthralgia [Unknown]
  - Injection site pruritus [Not Recovered/Not Resolved]
  - Injection site nodule [Unknown]
  - Rheumatoid arthritis [Unknown]
  - Infected bite [Unknown]
  - Arthropod bite [Unknown]

NARRATIVE: CASE EVENT DATE: 2015
